FAERS Safety Report 23947869 (Version 1)
Quarter: 2024Q2

REPORT INFORMATION
  Report Type: Spontaneous
  Country: DE (occurrence: None)
  Receive Date: 20240606
  Receipt Date: 20240606
  Transmission Date: 20240716
  Serious: Yes (Other)
  Sender: FDA-Public Use
  Company Number: DE-Unichem Pharmaceuticals (USA) Inc-UCM202406-000689

PATIENT
  Age: 21 Year
  Sex: Female

DRUGS (2)
  1. LAMOTRIGINE [Suspect]
     Active Substance: LAMOTRIGINE
     Indication: Bipolar disorder
     Dosage: UNKNOWN
  2. DULOXETINE [Concomitant]
     Active Substance: DULOXETINE
     Indication: Depression
     Dosage: UNKNOWN

REACTIONS (3)
  - Pleural effusion [Unknown]
  - Drug reaction with eosinophilia and systemic symptoms [Unknown]
  - Ascites [Unknown]
